FAERS Safety Report 10701079 (Version 1)
Quarter: 2015Q1

REPORT INFORMATION
  Report Type: Spontaneous
  Country: US (occurrence: None)
  Receive Date: 20150108
  Receipt Date: 20150108
  Transmission Date: 20150721
  Serious: No
  Sender: FDA-Public Use
  Company Number: None

PATIENT
  Age: 44 Year
  Sex: Female
  Weight: 68.04 kg

DRUGS (1)
  1. ELMIRON [Suspect]
     Active Substance: PENTOSAN POLYSULFATE SODIUM
     Indication: CYSTITIS INTERSTITIAL
     Dosage: 3 PILLS ONCE DAILY TAKEN BY MOUTH.
     Route: 048
     Dates: start: 20141213, end: 20150107

REACTIONS (3)
  - Hypertension [None]
  - Palpitations [None]
  - Back pain [None]

NARRATIVE: CASE EVENT DATE: 20141215
